FAERS Safety Report 5657550-X (Version None)
Quarter: 2008Q1

REPORT INFORMATION
  Report Type: 
  Country: None (occurrence: None)
  Receive Date: 20080310
  Receipt Date: 20080229
  Transmission Date: 20080703
  Serious: Yes (Life-Threatening, Hospitalization)
  Sender: FDA-Public Use
  Company Number: PHFR2008GB00826

PATIENT
  Age: 37 Year
  Sex: Male

DRUGS (4)
  1. DIAZEPAM [Suspect]
     Dosage: 5 MG, PRN
     Route: 048
  2. ARIPIPRAZOLE [Suspect]
     Dosage: 30MG DAILY
     Route: 048
  3. ESCITALOPRAM OXALATE [Suspect]
     Dosage: 20MG DAILY
     Route: 048
     Dates: start: 20071001
  4. CLOZARIL [Suspect]
     Indication: SCHIZOPHRENIA
     Dosage: 200MG DAILY
     Route: 048
     Dates: start: 20080129

REACTIONS (11)
  - ABDOMINAL PAIN UPPER [None]
  - BODY TEMPERATURE INCREASED [None]
  - CEREBROVASCULAR ACCIDENT [None]
  - DIARRHOEA [None]
  - DIZZINESS [None]
  - FATIGUE [None]
  - HEADACHE [None]
  - HEART RATE INCREASED [None]
  - MALAISE [None]
  - NAUSEA [None]
  - VOMITING [None]
